FAERS Safety Report 7167237-2 (Version None)
Quarter: 2010Q4

REPORT INFORMATION
  Report Type: 
  Country: None (occurrence: None)
  Receive Date: 20101216
  Receipt Date: 20101206
  Transmission Date: 20110411
  Serious: Yes (Hospitalization)
  Sender: FDA-Public Use
  Company Number: CA-JNJFOC-20101002716

PATIENT
  Sex: Female
  Weight: 73 kg

DRUGS (5)
  1. REMICADE [Suspect]
     Indication: RHEUMATOID ARTHRITIS
     Route: 042
  2. REMICADE [Suspect]
     Dosage: 3 INFUSIONS TOTAL
     Route: 042
  3. METHOTREXATE [Concomitant]
  4. OXYCODONE [Concomitant]
  5. TEMAZEPAM [Concomitant]

REACTIONS (5)
  - INFUSION RELATED REACTION [None]
  - OROPHARYNGEAL PAIN [None]
  - PANCREATITIS [None]
  - PRURITUS [None]
  - PRURITUS GENITAL [None]
